FAERS Safety Report 17894977 (Version 1)
Quarter: 2020Q2

REPORT INFORMATION
  Report Type: Spontaneous
  Country: DE (occurrence: DE)
  Receive Date: 20200615
  Receipt Date: 20200615
  Transmission Date: 20200714
  Serious: Yes (Hospitalization)
  Sender: FDA-Public Use
  Company Number: DE-ACCORD-185333

PATIENT
  Age: 78 Year
  Sex: Female

DRUGS (8)
  1. QUETIAPINE. [Suspect]
     Active Substance: QUETIAPINE
     Indication: PRODUCT USED FOR UNKNOWN INDICATION
     Dosage: 50 MG, 1-1-1-0, TABLET
     Route: 048
  2. PIPAMPERONE [Interacting]
     Active Substance: PIPAMPERONE
     Indication: PRODUCT USED FOR UNKNOWN INDICATION
     Dosage: 40 MG, 2X, TABLET
     Route: 048
  3. LORAZEPAM. [Interacting]
     Active Substance: LORAZEPAM
     Indication: PRODUCT USED FOR UNKNOWN INDICATION
     Dosage: 2.5 MG, 1X, TABLET
     Route: 048
  4. ELIQUIS [Interacting]
     Active Substance: APIXABAN
     Indication: PRODUCT USED FOR UNKNOWN INDICATION
     Dosage: 2.5 MG, 1-0-1-0, TABLET
     Route: 048
  5. PARACETAMOL [Concomitant]
     Active Substance: ACETAMINOPHEN
     Dosage: 500 MG, 8X, TABLET
     Route: 048
  6. TORASEMIDE [Concomitant]
     Active Substance: TORSEMIDE
     Dosage: 10 MG, 0.5-0-0-0, TABLET
     Route: 048
  7. RISPERIDONE. [Interacting]
     Active Substance: RISPERIDONE
     Indication: PRODUCT USED FOR UNKNOWN INDICATION
     Dosage: 0.5 MG, 1-1-1-0, TABLET
     Route: 048
  8. METAMIZOLE SODIUM [Concomitant]
     Active Substance: METAMIZOLE SODIUM
     Dosage: 500 MG, 3X, TABLET
     Route: 048

REACTIONS (5)
  - Dizziness [Unknown]
  - General physical health deterioration [Unknown]
  - Labelled drug-drug interaction medication error [Unknown]
  - Fatigue [Unknown]
  - Fall [Unknown]
